FAERS Safety Report 16849282 (Version 1)
Quarter: 2019Q3

REPORT INFORMATION
  Report Type: Spontaneous
  Country: US (occurrence: US)
  Receive Date: 20190925
  Receipt Date: 20190925
  Transmission Date: 20191005
  Serious: No
  Sender: FDA-Public Use
  Company Number: US-DRREDDYS-USA/USA/19/0114240

PATIENT
  Sex: Female
  Weight: 68.63 kg

DRUGS (1)
  1. FEXOFENADINE HCL [Suspect]
     Active Substance: FEXOFENADINE HYDROCHLORIDE
     Indication: HYPERSENSITIVITY
     Route: 048
     Dates: start: 20190909

REACTIONS (5)
  - Dysuria [Unknown]
  - Treatment noncompliance [Unknown]
  - Muscle spasms [Unknown]
  - Pelvic pain [Unknown]
  - Pollakiuria [Unknown]
